FAERS Safety Report 8103264-6 (Version None)
Quarter: 2011Q4

REPORT INFORMATION
  Report Type: 
  Country: None (occurrence: None)
  Receive Date: 20111222
  Receipt Date: 20111010
  Transmission Date: 20120403
  Serious: Yes (Hospitalization)
  Sender: FDA-Public Use
  Company Number: UTC-010246

PATIENT
  Age: 72 Year
  Sex: Female
  Weight: 58.2 kg

DRUGS (2)
  1. TYVASO [Suspect]
     Indication: PULMONARY ARTERIAL HYPERTENSION
     Dosage: 18 -54 MICROGRAMS  (4 IN 1 D), INHALATION
     Dates: start: 20101018
  2. REVATIO [Concomitant]

REACTIONS (4)
  - GASTRIC ANTRAL VASCULAR ECTASIA [None]
  - GASTROINTESTINAL HAEMORRHAGE [None]
  - ANAEMIA [None]
  - FLUID RETENTION [None]
